FAERS Safety Report 25864734 (Version 1)
Quarter: 2025Q3

REPORT INFORMATION
  Report Type: Spontaneous
  Country: CN (occurrence: CN)
  Receive Date: 20250930
  Receipt Date: 20250930
  Transmission Date: 20251021
  Serious: Yes (Hospitalization, Other)
  Sender: NOVITIUM PHARMA
  Company Number: CN-NOVITIUMPHARMA-2025CNNVP02407

PATIENT
  Age: 67 Year
  Sex: Female

DRUGS (23)
  1. PREDNISONE [Suspect]
     Active Substance: PREDNISONE
     Indication: Diffuse large B-cell lymphoma
     Dates: start: 202310
  2. PREDNISONE [Suspect]
     Active Substance: PREDNISONE
     Indication: Primary breast lymphoma
  3. PREDNISONE [Suspect]
     Active Substance: PREDNISONE
     Indication: Metastases to bone
  4. PREDNISONE [Suspect]
     Active Substance: PREDNISONE
     Indication: Primary breast lymphoma
  5. PREDNISONE [Suspect]
     Active Substance: PREDNISONE
     Indication: Metastases to bone
  6. HYDROXYCHLOROQUINE [Concomitant]
     Active Substance: HYDROXYCHLOROQUINE
     Indication: Interstitial lung disease
  7. HYDROXYCHLOROQUINE [Concomitant]
     Active Substance: HYDROXYCHLOROQUINE
     Indication: Sjogren^s syndrome
  8. AZATHIOPRINE [Concomitant]
     Active Substance: AZATHIOPRINE
     Indication: Interstitial lung disease
  9. AZATHIOPRINE [Concomitant]
     Active Substance: AZATHIOPRINE
     Indication: Sjogren^s syndrome
  10. CYCLOSPORINE [Concomitant]
     Active Substance: CYCLOSPORINE
     Indication: Interstitial lung disease
  11. CYCLOSPORINE [Concomitant]
     Active Substance: CYCLOSPORINE
     Indication: Sjogren^s syndrome
  12. RITUXIMAB [Concomitant]
     Active Substance: RITUXIMAB
     Indication: Diffuse large B-cell lymphoma
     Dates: start: 202310
  13. RITUXIMAB [Concomitant]
     Active Substance: RITUXIMAB
  14. RITUXIMAB [Concomitant]
     Active Substance: RITUXIMAB
  15. CYCLOPHOSPHAMIDE [Concomitant]
     Active Substance: CYCLOPHOSPHAMIDE
     Indication: Diffuse large B-cell lymphoma
     Dates: start: 202310
  16. CYCLOPHOSPHAMIDE [Concomitant]
     Active Substance: CYCLOPHOSPHAMIDE
  17. CYCLOPHOSPHAMIDE [Concomitant]
     Active Substance: CYCLOPHOSPHAMIDE
  18. DOXORUBICIN [Concomitant]
     Active Substance: DOXORUBICIN
     Indication: Diffuse large B-cell lymphoma
     Dates: start: 202310
  19. DOXORUBICIN [Concomitant]
     Active Substance: DOXORUBICIN
  20. DOXORUBICIN [Concomitant]
     Active Substance: DOXORUBICIN
  21. VINCRISTINE [Concomitant]
     Active Substance: VINCRISTINE
     Indication: Diffuse large B-cell lymphoma
     Dates: start: 202310
  22. VINCRISTINE [Concomitant]
     Active Substance: VINCRISTINE
  23. VINCRISTINE [Concomitant]
     Active Substance: VINCRISTINE
     Indication: Metastases to bone

REACTIONS (2)
  - Myelosuppression [Recovering/Resolving]
  - Pneumonia [Recovering/Resolving]
